FAERS Safety Report 24566814 (Version 2)
Quarter: 2024Q4

REPORT INFORMATION
  Report Type: Spontaneous
  Country: US (occurrence: US)
  Receive Date: 20241030
  Receipt Date: 20241225
  Transmission Date: 20250115
  Serious: Yes (Other)
  Sender: AMARIN
  Company Number: US-Amarin Pharma  Inc-2024AMR000524

PATIENT
  Age: 67 Year
  Sex: Female

DRUGS (4)
  1. VASCEPA [Suspect]
     Active Substance: ICOSAPENT ETHYL
     Indication: Blood cholesterol
     Dates: end: 202411
  2. VASCEPA [Suspect]
     Active Substance: ICOSAPENT ETHYL
     Dosage: UNKNOWN
     Dates: start: 2024, end: 2024
  3. VASCEPA [Suspect]
     Active Substance: ICOSAPENT ETHYL
  4. PLAVIX [Concomitant]
     Active Substance: CLOPIDOGREL BISULFATE

REACTIONS (10)
  - Cataract operation [Unknown]
  - Keratomileusis [Unknown]
  - Hernia hiatus repair [Unknown]
  - COVID-19 [Unknown]
  - Post-acute COVID-19 syndrome [Unknown]
  - Dysphagia [Unknown]
  - Weight decreased [Unknown]
  - Foreign body in throat [Unknown]
  - Product dose omission issue [Unknown]
  - Product physical issue [Unknown]

NARRATIVE: CASE EVENT DATE: 20240101
